FAERS Safety Report 5222408-7 (Version None)
Quarter: 2007Q1

REPORT INFORMATION
  Report Type: 
  Country: None (occurrence: None)
  Receive Date: 20070129
  Receipt Date: 20060706
  Transmission Date: 20070707
  Serious: Yes (Life-Threatening, Hospitalization)
  Sender: FDA-Public Use
  Company Number: US-BRISTOL-MYERS SQUIBB COMPANY-13434584

PATIENT

DRUGS (1)
  1. DESYREL [Suspect]

REACTIONS (1)
  - ARRHYTHMIA [None]
